FAERS Safety Report 5766479-8 (Version None)
Quarter: 2008Q2

REPORT INFORMATION
  Report Type: 
  Country: None (occurrence: None)
  Receive Date: 20080606
  Receipt Date: 20080523
  Transmission Date: 20081010
  Serious: Yes (Hospitalization)
  Sender: FDA-Public Use
  Company Number: S08-FRA-01717-01

PATIENT
  Age: 57 Year
  Sex: Male
  Weight: 70 kg

DRUGS (7)
  1. AOTAL(ACAMPROSATE) [Suspect]
     Indication: ALCOHOL ABUSE
     Dosage: 4 QD PO
     Route: 048
     Dates: start: 20080415, end: 20080425
  2. REVIA [Concomitant]
  3. LEXOMIL (BROMAZEPAM) [Concomitant]
  4. PROPOXYPHENE HCL AND ACETAMINOPHEN [Concomitant]
  5. LAMALINE [Concomitant]
  6. CARDIOCALM [Concomitant]
  7. MIOREL (THIOCOLCHICOSIDE) [Concomitant]

REACTIONS (9)
  - ASPARTATE AMINOTRANSFERASE INCREASED [None]
  - BLOOD ALKALINE PHOSPHATASE INCREASED [None]
  - BLOOD BILIRUBIN INCREASED [None]
  - GAMMA-GLUTAMYLTRANSFERASE INCREASED [None]
  - HAEMOGLOBIN DECREASED [None]
  - PLATELET COUNT DECREASED [None]
  - PURPURA [None]
  - RASH MACULO-PAPULAR [None]
  - SKIN DISORDER [None]
